FAERS Safety Report 7475225-1 (Version None)
Quarter: 2011Q2

REPORT INFORMATION
  Report Type: 
  Country: None (occurrence: None)
  Receive Date: 20110512
  Receipt Date: 20110502
  Transmission Date: 20111010
  Serious: Yes (Death, Other)
  Sender: FDA-Public Use
  Company Number: US-CELGENEUS-163-21880-11011802

PATIENT
  Sex: Female

DRUGS (3)
  1. REVLIMID [Suspect]
     Indication: MULTIPLE MYELOMA
     Route: 048
     Dates: start: 20070216, end: 20071219
  2. THALOMID [Suspect]
     Indication: MULTIPLE MYELOMA
     Dosage: UNKNOWN
     Route: 048
  3. MELPHALAN HYDROCHLORIDE [Suspect]
     Indication: MULTIPLE MYELOMA
     Route: 065

REACTIONS (3)
  - MULTIPLE MYELOMA [None]
  - CARCINOID TUMOUR PULMONARY [None]
  - CEREBROVASCULAR ACCIDENT [None]
